FAERS Safety Report 8312594-4 (Version None)
Quarter: 2012Q2

REPORT INFORMATION
  Report Type: 
  Country: None (occurrence: None)
  Receive Date: 20120424
  Receipt Date: 20120412
  Transmission Date: 20120825
  Serious: Yes (Other)
  Sender: FDA-Public Use
  Company Number: 2011SP052660

PATIENT
  Sex: Female

DRUGS (2)
  1. RIBAVIRIN [Suspect]
     Indication: HEPATITIS C
     Dates: start: 20111025
  2. PEG-INTRON [Suspect]
     Indication: HEPATITIS C
     Dates: start: 20111025

REACTIONS (18)
  - DYSPEPSIA [None]
  - ORAL CANDIDIASIS [None]
  - HEAD INJURY [None]
  - DECREASED APPETITE [None]
  - HYPOPHAGIA [None]
  - INSOMNIA [None]
  - VOMITING [None]
  - TOOTH FRACTURE [None]
  - FATIGUE [None]
  - ASTHENIA [None]
  - WEIGHT DECREASED [None]
  - DYSGEUSIA [None]
  - DYSPNOEA [None]
  - ANXIETY [None]
  - SYNCOPE [None]
  - DRUG INEFFECTIVE [None]
  - MALAISE [None]
  - CHILLS [None]
